FAERS Safety Report 5564659-8 (Version None)
Quarter: 2007Q4

REPORT INFORMATION
  Report Type: 
  Country: None (occurrence: None)
  Receive Date: 20071218
  Receipt Date: 20070510
  Transmission Date: 20080405
  Serious: Yes (Other)
  Sender: FDA-Public Use
  Company Number: US-ASTRAZENECA-2006UW08222

PATIENT
  Sex: Male

DRUGS (10)
  1. SEROQUEL [Suspect]
     Route: 048
  2. ABILIFY [Concomitant]
     Route: 048
  3. CLOZARIL [Concomitant]
     Route: 048
  4. GEODON [Concomitant]
     Route: 048
  5. HALDOL [Concomitant]
  6. NAVANE [Concomitant]
     Route: 048
  7. RISPERDAL [Concomitant]
     Route: 048
  8. STELAZINE [Concomitant]
     Route: 048
  9. THORAZINE [Concomitant]
  10. ZYPREXA [Concomitant]
     Route: 048
     Dates: start: 20000701, end: 20010101

REACTIONS (2)
  - DIABETES MELLITUS [None]
  - TARDIVE DYSKINESIA [None]
